FAERS Safety Report 8594958-7 (Version None)
Quarter: 2012Q3

REPORT INFORMATION
  Report Type: 
  Country: None (occurrence: None)
  Receive Date: 20120815
  Receipt Date: 20120811
  Transmission Date: 20120928
  Serious: Yes (Death, Other)
  Sender: FDA-Public Use
  Company Number: PHHY2012MX039403

PATIENT
  Sex: Female

DRUGS (11)
  1. BUDESONIDE [Concomitant]
     Indication: ASTHMA
     Dosage: 200 MG, QD
  2. FORADIL [Suspect]
     Dosage: 1 DF, DAILY
     Dates: start: 20120401
  3. SUCRALFATE [Concomitant]
  4. BUDESONIDE [Concomitant]
     Dosage: 400 MG, QD
  5. SULINDAC [Concomitant]
     Dosage: 200 MG, UNK
     Dates: start: 20110201
  6. FORADIL [Suspect]
     Indication: ASTHMA
     Dosage: UNK UKN, UNK
     Dates: start: 20100101
  7. METHOTREXATE [Concomitant]
     Indication: RHEUMATOID ARTHRITIS
     Dosage: 2 DF, EVERY 3 DAYS
  8. FORADIL [Suspect]
     Dosage: 2 DF, DAILY
     Dates: start: 20120501, end: 20120601
  9. ACETAMINOPHEN [Concomitant]
     Indication: PAIN
     Dosage: 2 DF, PRN
     Dates: start: 20110301
  10. OMEPRAZOLE [Concomitant]
     Dosage: 1 DF, UNK
  11. FOLIC ACID [Concomitant]
     Dates: start: 20110201

REACTIONS (8)
  - INCREASED UPPER AIRWAY SECRETION [None]
  - DEATH [None]
  - OXYGEN SATURATION DECREASED [None]
  - MALAISE [None]
  - CHRONIC OBSTRUCTIVE PULMONARY DISEASE [None]
  - PRODUCTIVE COUGH [None]
  - DYSPNOEA [None]
  - CONDITION AGGRAVATED [None]
